FAERS Safety Report 10264464 (Version 1)
Quarter: 2014Q2

REPORT INFORMATION
  Report Type: Spontaneous
  Country: BG (occurrence: BG)
  Receive Date: 20140627
  Receipt Date: 20140627
  Transmission Date: 20141212
  Serious: Yes (Hospitalization, Other)
  Sender: FDA-Public Use
  Company Number: BG-ASTRAZENECA-2014SE45631

PATIENT
  Age: 62 Year
  Sex: Female

DRUGS (6)
  1. BETALOC ZOK [Suspect]
     Route: 048
     Dates: start: 20140519
  2. BRILIQUE [Suspect]
     Indication: ANGINA UNSTABLE
     Route: 048
     Dates: start: 20110519
  3. BRILIQUE [Suspect]
     Indication: PERCUTANEOUS CORONARY INTERVENTION
     Route: 048
     Dates: start: 20110519
  4. ASPIRIN [Concomitant]
  5. ROSUVASTATIN [Concomitant]
  6. ACE-INHIBITOR [Concomitant]

REACTIONS (4)
  - Thrombosis in device [Unknown]
  - Coronary artery restenosis [Unknown]
  - Diabetes mellitus [Unknown]
  - Chest discomfort [Unknown]
